FAERS Safety Report 6123862-9 (Version None)
Quarter: 2009Q1

REPORT INFORMATION
  Report Type: 
  Country: None (occurrence: None)
  Receive Date: 20090319
  Receipt Date: 20090312
  Transmission Date: 20090719
  Serious: Yes (Hospitalization)
  Sender: FDA-Public Use
  Company Number: FR-PURDUE-GBR_2009_0004956

PATIENT
  Age: 79 Year
  Sex: Female

DRUGS (7)
  1. OXYNORM [Suspect]
     Indication: DRUG USE FOR UNKNOWN INDICATION
     Dosage: .5 MG, Q1H
     Route: 042
     Dates: start: 20081107, end: 20081109
  2. TEMESTA                            /00273201/ [Suspect]
     Indication: DRUG USE FOR UNKNOWN INDICATION
     Dosage: 4 MG, DAILY
     Route: 042
     Dates: end: 20081109
  3. MEPRONIZINE                        /00789201/ [Concomitant]
     Dosage: 1 DF, DAILY
     Route: 048
  4. EUPANTOL                           /01263201/ [Concomitant]
     Dosage: 40 MG, UNK
     Route: 048
  5. LIPANTHYL [Concomitant]
     Dosage: 1 DF, DAILY
     Route: 048
  6. ACUPAN [Concomitant]
     Indication: ABDOMINAL PAIN UPPER
     Route: 065
  7. DIANTALVIC [Concomitant]
     Indication: PAIN
     Dosage: UNK, UNK

REACTIONS (2)
  - ENCEPHALOPATHY [None]
  - SOMNOLENCE [None]
